FAERS Safety Report 10195325 (Version 3)
Quarter: 2015Q1

REPORT INFORMATION
  Report Type: Report from Study
  Country: CA (occurrence: CA)
  Receive Date: 20140526
  Receipt Date: 20150311
  Transmission Date: 20150720
  Serious: Yes (Other)
  Sender: FDA-Public Use
  Company Number: CA-UCBSA-079839

PATIENT
  Age: 31 Year
  Sex: Female
  Weight: 61 kg

DRUGS (6)
  1. CIPROLEX [Concomitant]
     Active Substance: CIPROFLOXACIN HYDROCHLORIDE
     Dosage: UNKNOWN DOSE
  2. PREDNISONE. [Concomitant]
     Active Substance: PREDNISONE
     Indication: JUVENILE IDIOPATHIC ARTHRITIS
     Dosage: 15 MG, ONCE DAILY (QD)
     Route: 048
     Dates: start: 2005
  3. CERTOLIZUMAB PEGOL RA [Suspect]
     Active Substance: CERTOLIZUMAB PEGOL
     Indication: JUVENILE IDIOPATHIC ARTHRITIS
     Dosage: 200 MG, EV 2 WEEKS(QOW)
     Route: 058
     Dates: start: 20111110, end: 201212
  4. CERTOLIZUMAB PEGOL RA [Suspect]
     Active Substance: CERTOLIZUMAB PEGOL
     Dosage: WEEKS 0-2-4
     Route: 058
     Dates: start: 20110929, end: 20111027
  5. ARAVA [Concomitant]
     Active Substance: LEFLUNOMIDE
     Indication: JUVENILE IDIOPATHIC ARTHRITIS
     Dosage: 20 MG, ONCE DAILY (QD)
     Route: 048
     Dates: start: 2000
  6. NAPROSYN [Concomitant]
     Active Substance: NAPROXEN
     Dosage: UNKNOWN DOSE

REACTIONS (5)
  - Fungal infection [Not Recovered/Not Resolved]
  - Influenza [Recovered/Resolved]
  - Blister [Not Recovered/Not Resolved]
  - Dermatitis [Unknown]
  - Ingrowing nail [Not Recovered/Not Resolved]

NARRATIVE: CASE EVENT DATE: 201206
